FAERS Safety Report 15462770 (Version 1)
Quarter: 2018Q4

REPORT INFORMATION
  Report Type: Report from Study
  Country: US (occurrence: US)
  Receive Date: 20181004
  Receipt Date: 20181004
  Transmission Date: 20190204
  Serious: Yes (Other)
  Sender: FDA-Public Use
  Company Number: US-GILEAD-2018-0366181

PATIENT
  Age: 40 Year
  Sex: Female

DRUGS (4)
  1. ADEMPAS [Concomitant]
     Active Substance: RIOCIGUAT
  2. SILDENAFIL. [Concomitant]
     Active Substance: SILDENAFIL
  3. AMBRISENTAN [Suspect]
     Active Substance: AMBRISENTAN
     Indication: PRODUCT USED FOR UNKNOWN INDICATION
     Dosage: 10 MG, QD
     Route: 065
     Dates: start: 20180928
  4. VELETRI [Concomitant]
     Active Substance: EPOPROSTENOL

REACTIONS (13)
  - Vomiting [Unknown]
  - Headache [Unknown]
  - Pain in jaw [Not Recovered/Not Resolved]
  - Pain in extremity [Not Recovered/Not Resolved]
  - Erythema [Not Recovered/Not Resolved]
  - Rash [Not Recovered/Not Resolved]
  - Head injury [Recovering/Resolving]
  - Malaise [Unknown]
  - Constipation [Unknown]
  - Joint injury [Recovering/Resolving]
  - Food poisoning [Unknown]
  - Loss of consciousness [Unknown]
  - Skeletal injury [Recovering/Resolving]

NARRATIVE: CASE EVENT DATE: 20180930
